FAERS Safety Report 7266399-6 (Version None)
Quarter: 2011Q1

REPORT INFORMATION
  Report Type: 
  Country: None (occurrence: None)
  Receive Date: 20110131
  Receipt Date: 20110124
  Transmission Date: 20110831
  Serious: Yes (Other)
  Sender: FDA-Public Use
  Company Number: AU-PFIZER INC-2011015955

PATIENT
  Age: 70 Year
  Sex: Male

DRUGS (2)
  1. EFFEXOR XR [Suspect]
     Indication: DEPRESSION
  2. EFFEXOR XR [Suspect]
     Indication: ANXIETY
     Dosage: 37.5 MG, 1X/DAY
     Dates: start: 20100101

REACTIONS (9)
  - NAUSEA [None]
  - ASTHENIA [None]
  - PARAESTHESIA [None]
  - ABNORMAL DREAMS [None]
  - HEADACHE [None]
  - RASH ERYTHEMATOUS [None]
  - HYPOAESTHESIA [None]
  - CHROMATURIA [None]
  - POOR QUALITY SLEEP [None]
